FAERS Safety Report 6363497-6 (Version None)
Quarter: 2009Q3

REPORT INFORMATION
  Report Type: 
  Country: None (occurrence: None)
  Receive Date: 20090919
  Receipt Date: 20090626
  Transmission Date: 20100115
  Serious: No
  Sender: FDA-Public Use
  Company Number: US-ABBOTT-09P-163-0582534-00

PATIENT
  Sex: Female
  Weight: 85.806 kg

DRUGS (15)
  1. HUMIRA [Suspect]
     Indication: RHEUMATOID ARTHRITIS
     Route: 058
     Dates: start: 20081218, end: 20090601
  2. HUMIRA [Suspect]
  3. METHOTREXATE [Concomitant]
     Indication: RHEUMATOID ARTHRITIS
  4. LOTEMAX [Concomitant]
     Indication: CORNEAL TRANSPLANT
     Route: 047
  5. ALPHAGAN [Concomitant]
     Indication: CORNEAL TRANSPLANT
     Route: 047
  6. RESTASIS [Concomitant]
     Indication: DRY EYE
  7. SERUM DROPS [Concomitant]
     Indication: DRY EYE
     Route: 047
  8. FOLIC ACID [Concomitant]
     Indication: DRUG USE FOR UNKNOWN INDICATION
  9. CALCIUM [Concomitant]
     Indication: OSTEOPOROSIS
  10. MAXZIDE [Concomitant]
     Indication: FLUID RETENTION
  11. NAMENDA [Concomitant]
     Indication: MEMORY IMPAIRMENT
  12. ARMOUR THYROID [Concomitant]
     Indication: HYPOTHYROIDISM
  13. ASCORBIC ACID [Concomitant]
     Indication: DRUG USE FOR UNKNOWN INDICATION
  14. FISH OIL [Concomitant]
     Indication: DRUG USE FOR UNKNOWN INDICATION
  15. WARFARIN SODIUM [Concomitant]
     Indication: DEEP VEIN THROMBOSIS

REACTIONS (3)
  - INJECTION SITE ERYTHEMA [None]
  - INJECTION SITE PRURITUS [None]
  - INJECTION SITE SWELLING [None]
